FAERS Safety Report 16317048 (Version 7)
Quarter: 2020Q2

REPORT INFORMATION
  Report Type: Spontaneous
  Country: US (occurrence: US)
  Receive Date: 20190515
  Receipt Date: 20200630
  Transmission Date: 20200713
  Serious: Yes (Other)
  Sender: FDA-Public Use
  Company Number: US-SA-2019SA129333

PATIENT

DRUGS (5)
  1. DUPIXENT [Suspect]
     Active Substance: DUPILUMAB
     Indication: ECZEMA
     Dosage: 600 MG, 1X
     Route: 058
     Dates: start: 20190401, end: 20190401
  2. PREDNISONE. [Concomitant]
     Active Substance: PREDNISONE
     Indication: ASTHMA
  3. DUPIXENT [Suspect]
     Active Substance: DUPILUMAB
     Indication: ASTHMA
     Dosage: 300 MG, QOW
     Route: 058
     Dates: start: 201903
  4. DUPIXENT [Suspect]
     Active Substance: DUPILUMAB
     Dosage: 200 MG, QOW
     Route: 058
     Dates: start: 201910
  5. DUPIXENT [Suspect]
     Active Substance: DUPILUMAB
     Dosage: 300 MG OTHER
     Route: 058
     Dates: start: 201907

REACTIONS (14)
  - Lethargy [Unknown]
  - Product storage error [Unknown]
  - Ocular hyperaemia [Unknown]
  - Product dose omission [Unknown]
  - Pain [Unknown]
  - Intraocular pressure increased [Unknown]
  - Chest injury [Unknown]
  - Staphylococcus test positive [Unknown]
  - Fall [Unknown]
  - Contusion [Unknown]
  - Viral infection [Unknown]
  - Pustule [Unknown]
  - Eye inflammation [Unknown]
  - Product use issue [Unknown]

NARRATIVE: CASE EVENT DATE: 2019
